FAERS Safety Report 25005209 (Version 1)
Quarter: 2025Q1

REPORT INFORMATION
  Report Type: Spontaneous
  Country: US (occurrence: None)
  Receive Date: 20250223
  Receipt Date: 20250223
  Transmission Date: 20250409
  Serious: Yes (Disabling, Other)
  Sender: FDA-CTU
  Company Number: None

PATIENT
  Age: 28 Year
  Sex: Male
  Weight: 78.75 kg

DRUGS (3)
  1. PROPECIA [Suspect]
     Active Substance: FINASTERIDE
     Indication: Alopecia
     Dosage: OTHER QUANTITY : 1 TABLET(S);?FREQUENCY : DAILY;?
     Route: 048
     Dates: start: 20230815, end: 20230905
  2. FINASTERIDE [Suspect]
     Active Substance: FINASTERIDE
     Indication: Alopecia
     Dosage: FREQUENCY : TWICE A DAY;?
     Route: 061
     Dates: start: 20230930, end: 20240401
  3. MAGNESIUM [Concomitant]
     Active Substance: MAGNESIUM

REACTIONS (11)
  - Anxiety [None]
  - Cognitive disorder [None]
  - Depression [None]
  - Erectile dysfunction [None]
  - Loss of libido [None]
  - Genital atrophy [None]
  - Fatigue [None]
  - Insomnia [None]
  - Headache [None]
  - Hangover [None]
  - Pollakiuria [None]

NARRATIVE: CASE EVENT DATE: 20240601
